FAERS Safety Report 23940645 (Version 1)
Quarter: 2024Q2

REPORT INFORMATION
  Report Type: Spontaneous
  Country: US (occurrence: US)
  Receive Date: 20240605
  Receipt Date: 20240605
  Transmission Date: 20240715
  Serious: Yes (Other)
  Sender: FDA-Public Use
  Company Number: US-ALKEM LABORATORIES LIMITED-IN-ALKEM-2024-06146

PATIENT
  Age: 78 Year
  Sex: Female

DRUGS (3)
  1. VANCOMYCIN [Suspect]
     Active Substance: VANCOMYCIN
     Indication: Haematoma infection
     Dosage: UNK, BID, 0.75
     Route: 065
  2. MEROPENEM [Concomitant]
     Active Substance: MEROPENEM
     Indication: Haematoma infection
     Dosage: UNK
     Route: 065
  3. MICAFUNGIN [Concomitant]
     Active Substance: MICAFUNGIN SODIUM
     Indication: Haematoma infection
     Dosage: UNK
     Route: 065

REACTIONS (1)
  - Acute kidney injury [Recovering/Resolving]
